FAERS Safety Report 6336867-X (Version None)
Quarter: 2009Q3

REPORT INFORMATION
  Report Type: 
  Country: None (occurrence: None)
  Receive Date: 20090901
  Receipt Date: 20090831
  Transmission Date: 20100115
  Serious: Yes (Hospitalization)
  Sender: FDA-Public Use
  Company Number: US-B.I. PHARMACEUTICALS,INC./RIDGEFIELD-2009-BP-09700BP

PATIENT
  Age: 69 Year
  Sex: Female

DRUGS (7)
  1. SPIRIVA [Suspect]
     Indication: EMPHYSEMA
     Dosage: 18 MCG
     Route: 055
     Dates: start: 20090412
  2. SPIRIVA [Suspect]
     Indication: RESPIRATORY TRACT INFECTION
  3. NEXIUM [Concomitant]
  4. MULTI-VITAMIN [Concomitant]
  5. VITAMIN D [Concomitant]
  6. CALCIUM [Concomitant]
  7. FOLIC ACID [Concomitant]

REACTIONS (4)
  - DYSPHONIA [None]
  - LARYNGITIS [None]
  - RESPIRATORY TRACT INFECTION [None]
  - THROAT IRRITATION [None]
